FAERS Safety Report 15801547 (Version 1)
Quarter: 2019Q1

REPORT INFORMATION
  Report Type: Spontaneous
  Country: US (occurrence: US)
  Receive Date: 20190107
  Receipt Date: 20190107
  Transmission Date: 20190417
  Serious: No
  Sender: FDA-Public Use
  Company Number: None

PATIENT

DRUGS (2)
  1. CLOFARABINE. [Suspect]
     Active Substance: CLOFARABINE
     Route: 042
  2. DECITABINE. [Suspect]
     Active Substance: DECITABINE
     Dosage: ?          OTHER DOSE:SINGLE DOSE STERIL;?
     Route: 042

REACTIONS (2)
  - Product label confusion [None]
  - Product packaging confusion [None]
